FAERS Safety Report 6244249-4 (Version None)
Quarter: 2009Q2

REPORT INFORMATION
  Report Type: 
  Country: None (occurrence: None)
  Receive Date: 20090625
  Receipt Date: 20090612
  Transmission Date: 20091009
  Serious: Yes (Hospitalization, Other)
  Sender: FDA-Public Use
  Company Number: DE-PFIZER INC-2009226282

PATIENT
  Age: 66 Year

DRUGS (26)
  1. LYRICA [Suspect]
     Dosage: UNK
     Route: 048
     Dates: start: 20080805, end: 20081003
  2. LYRICA [Suspect]
     Dosage: UNK
     Route: 048
     Dates: start: 20081004, end: 20081017
  3. LYRICA [Suspect]
     Dosage: UNK
     Route: 048
     Dates: start: 20081018
  4. APONAL [Suspect]
     Dosage: UNK
     Route: 048
     Dates: start: 20080611, end: 20080622
  5. APONAL [Suspect]
     Dosage: UNK
     Route: 048
     Dates: start: 20080623, end: 20080918
  6. APONAL [Suspect]
     Dosage: UNK
     Route: 048
     Dates: start: 20080919, end: 20081015
  7. APONAL [Suspect]
     Dosage: UNK
     Route: 048
     Dates: start: 20081016, end: 20081118
  8. VENLAFAXINE HCL [Suspect]
     Dosage: UNK
     Route: 048
     Dates: start: 20080903, end: 20081020
  9. VENLAFAXINE HCL [Suspect]
     Dosage: UNK
     Route: 048
     Dates: start: 20081021, end: 20081101
  10. ENALAPRIL [Concomitant]
     Dosage: UNK
     Route: 048
     Dates: start: 20080605, end: 20081017
  11. ENALAPRIL [Concomitant]
     Dosage: UNK
     Route: 048
     Dates: start: 20081018, end: 20081023
  12. ENALAPRIL [Concomitant]
     Dosage: UNK
     Route: 048
     Dates: start: 20081024, end: 20081113
  13. ENALAPRIL [Concomitant]
     Dosage: UNK
     Route: 048
     Dates: start: 20081114, end: 20090208
  14. PANTOZOL [Concomitant]
     Dosage: UNK
     Route: 048
     Dates: start: 20080813, end: 20081018
  15. PANTOZOL [Concomitant]
     Dosage: UNK
     Route: 048
     Dates: start: 20081019, end: 20081030
  16. ASPIRIN [Concomitant]
     Dosage: UNK
     Route: 048
     Dates: start: 20080605, end: 20090216
  17. FOSAMAX [Concomitant]
     Dosage: 70 MG EVERY 7TH DAY
     Route: 048
     Dates: start: 20080605
  18. SPIRIVA [Concomitant]
     Dosage: UNK
     Route: 048
     Dates: start: 20080605, end: 20090216
  19. SYMBICORT [Concomitant]
     Dosage: 4 PUFFS PER DAY
     Route: 048
     Dates: start: 20080605, end: 20090216
  20. SODIUM CHLORIDE [Concomitant]
     Dosage: 3 CAPSULES PER DAY
     Route: 048
     Dates: start: 20081011, end: 20081109
  21. CALCIUM [Concomitant]
     Dosage: UNK
     Route: 048
     Dates: start: 20080825, end: 20081113
  22. NICOTINELL TTS [Concomitant]
     Dosage: UNK
     Route: 062
     Dates: start: 20080818
  23. NICOTINELL TTS [Concomitant]
     Dosage: UNK
     Route: 062
     Dates: start: 20080828, end: 20080915
  24. NICOTINELL TTS [Concomitant]
     Dosage: UNK
     Route: 062
     Dates: start: 20080916, end: 20080927
  25. NICOTINELL TTS [Concomitant]
     Dosage: UNK
     Route: 062
     Dates: start: 20080928, end: 20080930
  26. NICOTINELL TTS [Concomitant]
     Dosage: UNK
     Route: 062
     Dates: start: 20081002, end: 20081110

REACTIONS (7)
  - ALANINE AMINOTRANSFERASE INCREASED [None]
  - ASPARTATE AMINOTRANSFERASE INCREASED [None]
  - BLOOD ALKALINE PHOSPHATASE INCREASED [None]
  - BLOOD CREATININE INCREASED [None]
  - C-REACTIVE PROTEIN INCREASED [None]
  - GAMMA-GLUTAMYLTRANSFERASE INCREASED [None]
  - HYPONATRAEMIA [None]
